FAERS Safety Report 5823421-9 (Version None)
Quarter: 2008Q3

REPORT INFORMATION
  Report Type: 
  Country: None (occurrence: None)
  Receive Date: 20080725
  Receipt Date: 20070719
  Transmission Date: 20090109
  Serious: No
  Sender: FDA-Public Use
  Company Number: US-ABBOTT-07P-163-0375388-00

PATIENT
  Sex: Male

DRUGS (4)
  1. RITONAVIR SOFT GELATIN CAPSULES [Suspect]
     Indication: HIV INFECTION
     Route: 048
  2. RITONAVIR SOFT GELATIN CAPSULES [Suspect]
  3. SAQUINAVIR MESILATE [Suspect]
     Indication: HIV INFECTION
  4. SAQUINAVIR MESILATE [Suspect]

REACTIONS (1)
  - DIARRHOEA [None]
